FAERS Safety Report 9955441 (Version 2)
Quarter: 2014Q1

REPORT INFORMATION
  Report Type: Report from Study
  Country: US (occurrence: US)
  Receive Date: 20140304
  Receipt Date: 20140304
  Transmission Date: 20141002
  Serious: No
  Sender: FDA-Public Use
  Company Number: US-ABBVIE-13P-163-1063400-00

PATIENT
  Age: 45 Year
  Sex: Male

DRUGS (2)
  1. HUMIRA [Suspect]
     Indication: PSORIASIS
     Route: 058
     Dates: start: 20130108, end: 20130108
  2. HUMIRA [Suspect]
     Route: 058
     Dates: start: 20130116

REACTIONS (2)
  - Muscle spasms [Recovered/Resolved]
  - Streptococcal infection [Recovered/Resolved]
